FAERS Safety Report 6000487-7 (Version None)
Quarter: 2008Q4

REPORT INFORMATION
  Report Type: 
  Country: None (occurrence: None)
  Receive Date: 20081215
  Receipt Date: 20080813
  Transmission Date: 20090506
  Serious: No
  Sender: FDA-Public Use
  Company Number: US-AMGEN-KDL297830

PATIENT
  Sex: Female
  Weight: 77.2 kg

DRUGS (11)
  1. ENBREL [Suspect]
     Indication: RHEUMATOID ARTHRITIS
     Route: 058
     Dates: start: 20080715
  2. METHOTREXATE [Concomitant]
     Route: 048
  3. TYLOX [Concomitant]
  4. AVAPRO [Concomitant]
  5. COUMADIN [Concomitant]
  6. CALCIUM [Concomitant]
  7. VERAPAMIL [Concomitant]
  8. PREDNISONE TAB [Concomitant]
  9. SYNTHROID [Concomitant]
  10. FOSAMAX [Concomitant]
  11. LASIX [Concomitant]

REACTIONS (3)
  - INJURY [None]
  - SCAB [None]
  - SKIN ULCER [None]
